FAERS Safety Report 16558169 (Version 1)
Quarter: 2019Q3

REPORT INFORMATION
  Report Type: Spontaneous
  Country: US (occurrence: US)
  Receive Date: 20190711
  Receipt Date: 20190711
  Transmission Date: 20191004
  Serious: Yes (Other)
  Sender: FDA-Public Use
  Company Number: US-APOTEX-2019AP017931

PATIENT
  Sex: Male

DRUGS (1)
  1. FLUTICASONE. [Suspect]
     Active Substance: FLUTICASONE
     Indication: RHINITIS
     Dosage: UNK, 2 SPRAY IN EACH NOSTRIL ONCE A DAY IN THE MORNING
     Route: 045
     Dates: start: 20190617

REACTIONS (1)
  - Blindness [Recovering/Resolving]
